FAERS Safety Report 9681955 (Version 2)
Quarter: 2013Q4

REPORT INFORMATION
  Report Type: Spontaneous
  Country: US (occurrence: US)
  Receive Date: 20131111
  Receipt Date: 20131122
  Transmission Date: 20140711
  Serious: Yes (Disabling, Other)
  Sender: FDA-Public Use
  Company Number: US-PFIZER INC-2013320822

PATIENT
  Age: 62 Year
  Sex: Male
  Weight: 104.76 kg

DRUGS (5)
  1. LYRICA [Suspect]
     Indication: DIABETIC NEUROPATHY
     Dosage: 300 MG, 1X/DAY
     Route: 048
  2. LYRICA [Suspect]
     Dosage: 200 MG, 1X/DAY
     Route: 048
     Dates: end: 2013
  3. LISINOPRIL [Suspect]
     Indication: HYPERTENSION
     Dosage: 20 MG, 1X/DAY
     Dates: end: 2013
  4. LISINOPRIL [Suspect]
     Dosage: 20 MG, 2X/DAY
     Dates: start: 2013
  5. GABAPENTIN [Suspect]
     Indication: DIABETIC NEUROPATHY
     Dosage: 300 MG, 3X/DAY
     Dates: start: 20131025, end: 20131113

REACTIONS (12)
  - Off label use [Unknown]
  - Spinal column injury [Unknown]
  - Spinal compression fracture [Unknown]
  - Back injury [Unknown]
  - Blood glucose abnormal [Unknown]
  - Thermal burn [Unknown]
  - Pain [Unknown]
  - Blood glucose increased [Unknown]
  - Hypertension [Unknown]
  - Back pain [Unknown]
  - Pain in extremity [Unknown]
  - Drug ineffective for unapproved indication [Unknown]
